FAERS Safety Report 23061255 (Version 1)
Quarter: 2023Q4

REPORT INFORMATION
  Report Type: Spontaneous
  Country: CN (occurrence: CN)
  Receive Date: 20231013
  Receipt Date: 20231013
  Transmission Date: 20240110
  Serious: Yes (Death, Hospitalization, Other)
  Sender: FDA-Public Use
  Company Number: CN-NOVAST LABORATORIES INC.-2023NOV000313

PATIENT
  Age: 61 Year
  Sex: Male

DRUGS (5)
  1. FLUOROURACIL [Suspect]
     Active Substance: FLUOROURACIL
     Indication: Colon cancer stage IV
     Dosage: 500 MILLIGRAM (366 MG/M2 ) INFUSION FOR 2 HR
     Route: 042
     Dates: start: 20220708
  2. FLUOROURACIL [Suspect]
     Active Substance: FLUOROURACIL
     Dosage: 3000 MILLIGRAM (1600 MG/M2 ) INFUSION PUMP FOR 48 H EVERY 14 DAYS.
     Route: 065
     Dates: start: 20220708
  3. CETUXIMAB [Suspect]
     Active Substance: CETUXIMAB
     Indication: Colon cancer stage IV
     Dosage: 600 MG (320 MG/M2 ) D1
     Route: 065
     Dates: start: 20220708
  4. CETUXIMAB [Suspect]
     Active Substance: CETUXIMAB
     Dosage: 300 MILLIGRAM (160 MG/M2 ) D8
     Route: 065
  5. Calcium Folinic Acid [Concomitant]
     Indication: Colon cancer stage IV
     Dosage: 760 MG (400 MG/M2 ) D1
     Route: 065

REACTIONS (5)
  - Portal vein thrombosis [Fatal]
  - Splenic vein thrombosis [Fatal]
  - Pneumonia bacterial [Fatal]
  - Pneumonia fungal [Fatal]
  - Respiratory failure [Fatal]
